FAERS Safety Report 25009894 (Version 1)
Quarter: 2025Q1

REPORT INFORMATION
  Report Type: Spontaneous
  Country: US (occurrence: US)
  Receive Date: 20250225
  Receipt Date: 20250225
  Transmission Date: 20250409
  Serious: Yes (Other)
  Sender: SANOFI AVENTIS
  Company Number: US-SA-2025SA054220

PATIENT
  Age: 96 Year
  Sex: Female

DRUGS (1)
  1. DUPIXENT [Suspect]
     Active Substance: DUPILUMAB
     Dosage: 300 MG, QOW
     Route: 058

REACTIONS (10)
  - Basal cell carcinoma [Unknown]
  - Swelling of eyelid [Unknown]
  - Eyelid skin dryness [Unknown]
  - Erythema of eyelid [Unknown]
  - Visual impairment [Unknown]
  - Condition aggravated [Unknown]
  - Hyperkeratosis [Unknown]
  - Erythema [Unknown]
  - Gait disturbance [Unknown]
  - Arthralgia [Unknown]
